FAERS Safety Report 9168056 (Version 2)
Quarter: 2013Q2

REPORT INFORMATION
  Report Type: Spontaneous
  Country: US (occurrence: None)
  Receive Date: 20130313
  Receipt Date: 20130403
  Transmission Date: 20140414
  Serious: Yes (Death, Hospitalization)
  Sender: FDA-Public Use
  Company Number: CQC #19281

PATIENT
  Age: 45 Year
  Sex: Male
  Weight: 90.72 kg

DRUGS (1)
  1. PURELL ADVANCED INSTANT HAND SANITIZER [Suspect]
     Indication: ANTI-INFECTIVE THERAPY
     Dosage: UNKNOWN QUANTITY 047
     Dates: start: 20130212, end: 20130226

REACTIONS (4)
  - Intentional drug misuse [None]
  - Incorrect route of drug administration [None]
  - Feeling drunk [None]
  - Somnolence [None]
